FAERS Safety Report 25715815 (Version 1)
Quarter: 2025Q3

REPORT INFORMATION
  Report Type: Spontaneous
  Country: US (occurrence: None)
  Receive Date: 20250821
  Receipt Date: 20250821
  Transmission Date: 20251021
  Serious: Yes (Death)
  Sender: FDA-CTU
  Company Number: None

PATIENT
  Age: 6 Day
  Sex: Male
  Weight: 3.62 kg

DRUGS (3)
  1. QUETIAPINE [Suspect]
     Active Substance: QUETIAPINE
     Indication: Bipolar disorder
     Dates: start: 20220317
  2. LAMOTRIGINE [Suspect]
     Active Substance: LAMOTRIGINE
  3. PROPRANOLOL [Suspect]
     Active Substance: PROPRANOLOL HYDROCHLORIDE

REACTIONS (6)
  - Caesarean section [None]
  - Maternal exposure during pregnancy [None]
  - Maternal drugs affecting foetus [None]
  - Neonatal dyspnoea [None]
  - Pyrexia [None]
  - Death neonatal [None]

NARRATIVE: CASE EVENT DATE: 20230104
